FAERS Safety Report 5663060-6 (Version None)
Quarter: 2008Q1

REPORT INFORMATION
  Report Type: 
  Country: None (occurrence: None)
  Receive Date: 20080313
  Receipt Date: 20080304
  Transmission Date: 20080703
  Serious: Yes (Other)
  Sender: FDA-Public Use
  Company Number: DE-PFIZER INC-2008021343

PATIENT
  Sex: Male
  Weight: 90 kg

DRUGS (1)
  1. CHANTIX [Suspect]
     Indication: NICOTINE DEPENDENCE
     Route: 048

REACTIONS (2)
  - HEMIANOPIA [None]
  - VISUAL FIELD DEFECT [None]
